FAERS Safety Report 5101233-1 (Version None)
Quarter: 2006Q3

REPORT INFORMATION
  Report Type: 
  Country: None (occurrence: None)
  Receive Date: 20060911
  Receipt Date: 20060828
  Transmission Date: 20061208
  Serious: Yes (Other)
  Sender: FDA-Public Use
  Company Number: FR-ROCHE-461271

PATIENT
  Sex: Female

DRUGS (2)
  1. PEGASYS [Suspect]
     Route: 065
  2. PEGASYS [Suspect]
     Route: 065

REACTIONS (2)
  - DRUG EFFECT DECREASED [None]
  - FACIAL PALSY [None]
